FAERS Safety Report 7034699-0 (Version None)
Quarter: 2010Q4

REPORT INFORMATION
  Report Type: 
  Country: None (occurrence: None)
  Receive Date: 20101008
  Receipt Date: 20100930
  Transmission Date: 20110411
  Serious: Yes (Hospitalization)
  Sender: FDA-Public Use
  Company Number: US-ASTRAZENECA-2010SE46085

PATIENT
  Sex: Female

DRUGS (14)
  1. CRESTOR [Suspect]
     Route: 048
     Dates: start: 20100601, end: 20100927
  2. CRESTOR [Suspect]
     Route: 048
     Dates: start: 20100927
  3. SINGULAIR [Suspect]
  4. VERAPAMIL [Concomitant]
  5. ACCUPRIL [Concomitant]
  6. LASIX [Concomitant]
  7. KDUR [Concomitant]
  8. RELAFEN [Concomitant]
  9. VITAMIN D [Concomitant]
     Dosage: BI WEEKLY
  10. ASPIRIN [Concomitant]
  11. AULSCO INHALER [Concomitant]
  12. ZYRTEC [Concomitant]
  13. FISH OIL [Concomitant]
  14. MAGNESIUM [Concomitant]

REACTIONS (1)
  - VENTRICULAR EXTRASYSTOLES [None]
